FAERS Safety Report 4359680-1 (Version None)
Quarter: 2004Q2

REPORT INFORMATION
  Report Type: 
  Country: None (occurrence: None)
  Receive Date: 20040513
  Receipt Date: 20040504
  Transmission Date: 20050107
  Serious: Yes (Other)
  Sender: FDA-Public Use
  Company Number: 2004029996

PATIENT
  Age: 54 Year
  Sex: Female

DRUGS (1)
  1. PHENYTOIN [Suspect]
     Indication: TRIGEMINAL NEURALGIA
     Dosage: 300 MG (100 MG, TID)

REACTIONS (7)
  - DISEASE RECURRENCE [None]
  - DRUG TOXICITY [None]
  - HEADACHE [None]
  - NAUSEA [None]
  - PSYCHOTIC DISORDER [None]
  - SOCIAL AVOIDANT BEHAVIOUR [None]
  - TRIGEMINAL NEURALGIA [None]
